FAERS Safety Report 6472035-9 (Version None)
Quarter: 2009Q4

REPORT INFORMATION
  Report Type: 
  Country: None (occurrence: None)
  Receive Date: 20091203
  Receipt Date: 20080428
  Transmission Date: 20100525
  Serious: Yes (Death, Other)
  Sender: FDA-Public Use
  Company Number: JP-ELI_LILLY_AND_COMPANY-JP200804002982

PATIENT
  Sex: Female
  Weight: 55 kg

DRUGS (1)
  1. GEMZAR [Suspect]
     Indication: GALLBLADDER CANCER
     Dosage: 1400 MG, OTHER
     Route: 042
     Dates: start: 20080313, end: 20080313

REACTIONS (3)
  - DISSEMINATED INTRAVASCULAR COAGULATION [None]
  - HAEMOGLOBIN DECREASED [None]
  - MALIGNANT NEOPLASM PROGRESSION [None]
